FAERS Safety Report 4446335-8 (Version None)
Quarter: 2004Q3

REPORT INFORMATION
  Report Type: 
  Country: None (occurrence: None)
  Receive Date: 20040910
  Receipt Date: 20040202
  Transmission Date: 20050211
  Serious: Yes (Hospitalization, Other)
  Sender: FDA-Public Use
  Company Number: US-BRISTOL-MYERS SQUIBB COMPANY-12494365

PATIENT
  Age: 49 Year
  Sex: Male
  Weight: 84 kg

DRUGS (15)
  1. ATAZANAVIR [Suspect]
     Indication: HIV INFECTION
     Route: 048
     Dates: start: 20031218
  2. COCAINE [Suspect]
     Route: 045
  3. HEROIN [Suspect]
     Route: 042
  4. EPIVIR [Concomitant]
  5. VIRACEPT [Concomitant]
     Dosage: 150 MG EACH TAB, 5 TABS TWICE DIALY
     Route: 048
  6. OXYCONTIN [Concomitant]
  7. ABACAVIR [Concomitant]
  8. XANAX [Concomitant]
  9. DAPSONE [Concomitant]
     Indication: PROPHYLAXIS
     Route: 048
  10. VIAGRA [Concomitant]
  11. EFFEXOR XR [Concomitant]
  12. STROVITE FORTE [Concomitant]
     Indication: CACHEXIA
     Route: 048
  13. BOOST [Concomitant]
     Indication: CACHEXIA
     Route: 048
  14. LOPROX [Concomitant]
     Route: 061
  15. ZYRTEC [Concomitant]
     Route: 048

REACTIONS (6)
  - BACK PAIN [None]
  - NEPHRITIS ALLERGIC [None]
  - OVERDOSE [None]
  - PANCYTOPENIA [None]
  - POLYSUBSTANCE ABUSE [None]
  - RENAL FAILURE ACUTE [None]
